FAERS Safety Report 13230139 (Version 1)
Quarter: 2017Q1

REPORT INFORMATION
  Report Type: Spontaneous
  Country: NO (occurrence: NO)
  Receive Date: 20170214
  Receipt Date: 20170214
  Transmission Date: 20170428
  Serious: Yes (Hospitalization)
  Sender: FDA-Public Use
  Company Number: NO-TEVA-737899ACC

PATIENT
  Sex: Male

DRUGS (3)
  1. PENICILLIN ACTAVIS [Suspect]
     Active Substance: PENICILLIN G
     Indication: PNEUMONIA
     Route: 042
     Dates: start: 201609, end: 201609
  2. NAPROXEN. [Concomitant]
     Active Substance: NAPROXEN
     Route: 048
  3. PARACET [Concomitant]
     Active Substance: ACETAMINOPHEN
     Route: 048

REACTIONS (1)
  - Drug reaction with eosinophilia and systemic symptoms [Recovering/Resolving]

NARRATIVE: CASE EVENT DATE: 2016
